FAERS Safety Report 12186315 (Version 1)
Quarter: 2016Q1

REPORT INFORMATION
  Report Type: Spontaneous
  Country: US (occurrence: US)
  Receive Date: 20160317
  Receipt Date: 20160317
  Transmission Date: 20160526
  Serious: No
  Sender: FDA-Public Use
  Company Number: US-009507513-1603USA007088

PATIENT
  Age: 45 Year
  Sex: Female

DRUGS (1)
  1. BELSOMRA [Suspect]
     Active Substance: SUVOREXANT
     Indication: INSOMNIA
     Dosage: 10 MG DAILY
     Route: 048
     Dates: start: 20160311, end: 20160312

REACTIONS (4)
  - Dyspnoea [Recovering/Resolving]
  - Lethargy [Recovering/Resolving]
  - Hypoaesthesia [Recovering/Resolving]
  - Dreamy state [Recovering/Resolving]

NARRATIVE: CASE EVENT DATE: 20160311
